FAERS Safety Report 14182102 (Version 4)
Quarter: 2018Q2

REPORT INFORMATION
  Report Type: Report from Study
  Country: None (occurrence: US)
  Receive Date: 20171113
  Receipt Date: 20180518
  Transmission Date: 20180711
  Serious: Yes (Other)
  Sender: FDA-Public Use
  Company Number: US-ABBVIE-17K-163-2155675-00

PATIENT
  Age: 45 Year
  Sex: Female
  Weight: 74.91 kg

DRUGS (6)
  1. GABAPENTIN. [Concomitant]
     Active Substance: GABAPENTIN
     Indication: BIPOLAR DISORDER
  2. HUMIRA [Suspect]
     Active Substance: ADALIMUMAB
     Indication: PSORIATIC ARTHROPATHY
     Route: 058
     Dates: start: 2014
  3. PROZAC [Concomitant]
     Active Substance: FLUOXETINE HYDROCHLORIDE
     Indication: BIPOLAR DISORDER
  4. PRAZOSIN. [Concomitant]
     Active Substance: PRAZOSIN
     Indication: BIPOLAR DISORDER
  5. METHOTREXATE. [Concomitant]
     Active Substance: METHOTREXATE
     Indication: PSORIATIC ARTHROPATHY
  6. MELOXICAM. [Concomitant]
     Active Substance: MELOXICAM
     Indication: PSORIATIC ARTHROPATHY

REACTIONS (12)
  - Impaired healing [Unknown]
  - Pain [Not Recovered/Not Resolved]
  - Haemorrhoids [Unknown]
  - Post procedural complication [Unknown]
  - Pain [Unknown]
  - Anal fissure [Unknown]
  - Weight decreased [Unknown]
  - Frequent bowel movements [Unknown]
  - Weight decreased [Recovered/Resolved]
  - Discomfort [Not Recovered/Not Resolved]
  - Bipolar I disorder [Recovering/Resolving]
  - Procedural pain [Not Recovered/Not Resolved]

NARRATIVE: CASE EVENT DATE: 2016
